FAERS Safety Report 7612355-5 (Version None)
Quarter: 2011Q3

REPORT INFORMATION
  Report Type: 
  Country: None (occurrence: None)
  Receive Date: 20110716
  Receipt Date: 20110706
  Transmission Date: 20111222
  Serious: Yes (Hospitalization, Other)
  Sender: FDA-Public Use
  Company Number: US-ASTRAZENECA-2011SE06806

PATIENT
  Age: 54 Year
  Sex: Female

DRUGS (1)
  1. NEXIUM [Suspect]
     Route: 048

REACTIONS (7)
  - HOSPITALISATION [None]
  - CATARACT [None]
  - CATARACT OPERATION [None]
  - DRUG DOSE OMISSION [None]
  - VISUAL IMPAIRMENT [None]
  - CARDIAC DISORDER [None]
  - MALAISE [None]
